FAERS Safety Report 14260033 (Version 10)
Quarter: 2022Q1

REPORT INFORMATION
  Report Type: Spontaneous
  Country: US (occurrence: US)
  Receive Date: 20171207
  Receipt Date: 20220224
  Transmission Date: 20220423
  Serious: Yes (Hospitalization)
  Sender: FDA-Public Use
  Company Number: US-VIFOR (INTERNATIONAL) INC.-VIT-2016-05785

PATIENT
  Age: 68 Year
  Sex: Female

DRUGS (10)
  1. VELTASSA [Suspect]
     Active Substance: PATIROMER
     Indication: Hyperkalaemia
     Route: 048
  2. VELTASSA [Suspect]
     Active Substance: PATIROMER
     Route: 048
     Dates: start: 20160826
  3. VELTASSA [Suspect]
     Active Substance: PATIROMER
     Route: 048
     Dates: start: 20160826
  4. VELTASSA [Suspect]
     Active Substance: PATIROMER
     Dosage: 1 PACKET DAILY
     Route: 048
  5. VELTASSA [Suspect]
     Active Substance: PATIROMER
     Route: 048
  6. AMLODIPINE BESYLATE [Concomitant]
     Active Substance: AMLODIPINE BESYLATE
  7. VITAMIN D3 [Concomitant]
     Active Substance: CHOLECALCIFEROL
  8. CALCITRIOL [Concomitant]
     Active Substance: CALCITRIOL
  9. ESTRADIOL [Concomitant]
     Active Substance: ESTRADIOL
  10. SODIUM BICARBONATE [Concomitant]
     Active Substance: SODIUM BICARBONATE

REACTIONS (15)
  - Hip surgery [Unknown]
  - Coronavirus infection [Unknown]
  - Renal impairment [Unknown]
  - Hypotension [Not Recovered/Not Resolved]
  - Malaise [Unknown]
  - Fatigue [Not Recovered/Not Resolved]
  - Sneezing [Unknown]
  - Rhinorrhoea [Unknown]
  - Abdominal discomfort [Unknown]
  - Nausea [Unknown]
  - Diarrhoea [Unknown]
  - Vomiting [Unknown]
  - Treatment noncompliance [Unknown]
  - Off label use [Unknown]
  - Product dose omission issue [Unknown]

NARRATIVE: CASE EVENT DATE: 20160826
